FAERS Safety Report 8843695 (Version 4)
Quarter: 2013Q1

REPORT INFORMATION
  Report Type: Spontaneous
  Country: US (occurrence: US)
  Receive Date: 20121016
  Receipt Date: 20130320
  Transmission Date: 20140127
  Serious: No
  Sender: FDA-Public Use
  Company Number: US-009507513-1210USA004389

PATIENT
  Sex: Female

DRUGS (3)
  1. PEGINTRON [Suspect]
     Indication: HEPATITIS C
     Dosage: REDIPEN
     Route: 058
     Dates: start: 20120927, end: 20130312
  2. RIBAVIRIN [Suspect]
     Indication: HEPATITIS C
     Dosage: UNK
     Route: 048
     Dates: start: 20120927, end: 20130312
  3. TELAPREVIR [Suspect]
     Indication: HEPATITIS C
     Dosage: UNK
     Dates: start: 20120927, end: 20121213

REACTIONS (17)
  - Malaise [Unknown]
  - Influenza like illness [Unknown]
  - Rash [Unknown]
  - Bronchitis [Unknown]
  - Exercise tolerance decreased [Unknown]
  - Memory impairment [Unknown]
  - Contusion [Unknown]
  - Red blood cell count decreased [Unknown]
  - Eating disorder [Unknown]
  - Fungal infection [Unknown]
  - Vomiting [Unknown]
  - Pain [Unknown]
  - Diarrhoea [Unknown]
  - Upper respiratory tract infection [Unknown]
  - Respiratory disorder [Unknown]
  - Candida infection [Unknown]
  - Pain [Unknown]
